FAERS Safety Report 5242548-6 (Version None)
Quarter: 2007Q1

REPORT INFORMATION
  Report Type: 
  Country: None (occurrence: None)
  Receive Date: 20070221
  Receipt Date: 20070209
  Transmission Date: 20070707
  Serious: Yes (Other)
  Sender: FDA-Public Use
  Company Number: GBWYE614709FEB07

PATIENT
  Age: 44 Year
  Sex: Female

DRUGS (2)
  1. ENBREL [Suspect]
     Indication: ANKYLOSING SPONDYLITIS
     Dates: start: 20060201, end: 20070101
  2. TRAMADOL HCL [Concomitant]
     Dosage: 100 MG (UNKNOWN FREQUENCY)
     Route: 048
     Dates: end: 20061201

REACTIONS (1)
  - ALANINE AMINOTRANSFERASE INCREASED [None]
